FAERS Safety Report 5553363-8 (Version None)
Quarter: 2007Q4

REPORT INFORMATION
  Report Type: 
  Country: None (occurrence: None)
  Receive Date: 20071212
  Receipt Date: 20071212
  Transmission Date: 20080405
  Serious: No
  Sender: FDA-Public Use
  Company Number: None

PATIENT
  Sex: Female
  Weight: 88.905 kg

DRUGS (1)
  1. NORVASC [Suspect]
     Indication: HYPERTENSION
     Dosage: 90 DAILY P.O.
     Route: 048
     Dates: start: 20071101

REACTIONS (1)
  - COUGH [None]
